FAERS Safety Report 7920877-2 (Version None)
Quarter: 2011Q4

REPORT INFORMATION
  Report Type: 
  Country: None (occurrence: None)
  Receive Date: 20111117
  Receipt Date: 20110831
  Transmission Date: 20120403
  Serious: No
  Sender: FDA-Public Use
  Company Number: US-GLAXOSMITHKLINE-A0943954A

PATIENT
  Sex: Male

DRUGS (4)
  1. TEKTURNA [Concomitant]
  2. BENICAR [Concomitant]
  3. COREG [Concomitant]
  4. VOTRIENT [Suspect]
     Route: 048
     Dates: start: 20110824

REACTIONS (5)
  - HYPERAESTHESIA [None]
  - HEADACHE [None]
  - PRURITUS [None]
  - CHEST DISCOMFORT [None]
  - BLOOD PRESSURE ABNORMAL [None]
